FAERS Safety Report 5532198-6 (Version None)
Quarter: 2007Q4

REPORT INFORMATION
  Report Type: 
  Country: None (occurrence: None)
  Receive Date: 20071203
  Receipt Date: 20070216
  Transmission Date: 20080405
  Serious: Yes (Other)
  Sender: FDA-Public Use
  Company Number: US-BRISTOL-MYERS SQUIBB COMPANY-13682331

PATIENT
  Sex: Male

DRUGS (2)
  1. VIDEX [Suspect]
  2. VIREAD [Suspect]

REACTIONS (1)
  - PANCREATITIS [None]
